FAERS Safety Report 24272047 (Version 2)
Quarter: 2024Q3

REPORT INFORMATION
  Report Type: Spontaneous
  Country: US (occurrence: US)
  Receive Date: 20240902
  Receipt Date: 20240917
  Transmission Date: 20241016
  Serious: No
  Sender: TRIS PHARM
  Company Number: US-TRIS PHARMA, INC.-24US011602

PATIENT

DRUGS (1)
  1. ACETAMINOPHEN\HYDROCODONE BITARTRATE [Suspect]
     Active Substance: ACETAMINOPHEN\HYDROCODONE BITARTRATE
     Indication: Pain
     Dosage: 1 DOSAGE FORM, PRN (3 TIMES A DAY)
     Route: 048
     Dates: start: 202408, end: 20240827

REACTIONS (8)
  - Hypoaesthesia [Unknown]
  - Malaise [Unknown]
  - Product physical issue [Unknown]
  - Product quality issue [Unknown]
  - Product taste abnormal [Unknown]
  - Headache [Unknown]
  - Drug hypersensitivity [Unknown]
  - Drug ineffective [Unknown]

NARRATIVE: CASE EVENT DATE: 20240801
